FAERS Safety Report 6051451-3 (Version None)
Quarter: 2009Q1

REPORT INFORMATION
  Report Type: 
  Country: None (occurrence: None)
  Receive Date: 20090126
  Receipt Date: 20090116
  Transmission Date: 20090719
  Serious: Yes (Death)
  Sender: FDA-Public Use
  Company Number: A0652995A

PATIENT
  Age: 58 Year
  Sex: Male
  Weight: 96.8 kg

DRUGS (8)
  1. AVANDIA [Suspect]
     Dosage: 8MG PER DAY
     Route: 048
     Dates: start: 20020101, end: 20050803
  2. METFORMIN [Concomitant]
  3. GLYBURIDE [Concomitant]
  4. TENORMIN [Concomitant]
  5. TRAZODONE HCL [Concomitant]
  6. DIAZEPAM [Concomitant]
  7. GEMFIBROZIL [Concomitant]
  8. SERTRALINE [Concomitant]

REACTIONS (4)
  - CARDIAC FAILURE CONGESTIVE [None]
  - DEATH [None]
  - HEART INJURY [None]
  - MYOCARDIAL INFARCTION [None]
